FAERS Safety Report 17908832 (Version 2)
Quarter: 2021Q1

REPORT INFORMATION
  Report Type: Other
  Country: AU (occurrence: AU)
  Receive Date: 20200617
  Receipt Date: 20210218
  Transmission Date: 20210419
  Serious: Yes (Hospitalization)
  Sender: FDA-Public Use
  Company Number: AU-ROCHE-2619457

PATIENT
  Age: 72 Year
  Sex: Female

DRUGS (4)
  1. HYOSCINE BUTYLBROMIDE [Suspect]
     Active Substance: BUTYLSCOPOLAMINE BROMIDE
     Indication: ABDOMINAL PAIN
     Route: 065
     Dates: end: 2019
  2. MORPHINE [Suspect]
     Active Substance: MORPHINE
     Indication: CANCER PAIN
     Route: 058
     Dates: start: 2019, end: 2019
  3. DIAZEPAM. [Suspect]
     Active Substance: DIAZEPAM
     Indication: ANXIOLYTIC THERAPY
     Route: 065
     Dates: end: 2019
  4. MORPHINE [Suspect]
     Active Substance: MORPHINE
     Route: 048
     Dates: end: 2019

REACTIONS (6)
  - Hallucination, auditory [Recovered/Resolved]
  - Neurotoxicity [Recovered/Resolved]
  - Therapeutic response decreased [Unknown]
  - Emotional distress [Recovered/Resolved]
  - Hallucination, visual [Recovered/Resolved]
  - Hallucination, tactile [Recovered/Resolved]

NARRATIVE: CASE EVENT DATE: 2019
